FAERS Safety Report 18067012 (Version 1)
Quarter: 2020Q3

REPORT INFORMATION
  Report Type: Spontaneous
  Country: CA (occurrence: CA)
  Receive Date: 20200724
  Receipt Date: 20200724
  Transmission Date: 20201103
  Serious: Yes (Other)
  Sender: FDA-Public Use
  Company Number: CA-ALLERGAN-2027436US

PATIENT
  Sex: Male

DRUGS (11)
  1. XOLAIR [Suspect]
     Active Substance: OMALIZUMAB
     Dosage: ONCE EVERY 2 WEEKS
     Route: 058
  2. TOBRAMYCIN. [Suspect]
     Active Substance: TOBRAMYCIN
     Indication: PRODUCT USED FOR UNKNOWN INDICATION
  3. ADVAIR HFA [Concomitant]
     Active Substance: FLUTICASONE PROPIONATE\SALMETEROL XINAFOATE
  4. PREDNISONE. [Concomitant]
     Active Substance: PREDNISONE
  5. SINGULAIR [Concomitant]
     Active Substance: MONTELUKAST SODIUM
  6. VENTOLIN [Concomitant]
     Active Substance: ALBUTEROL SULFATE
  7. FOSFOMYCIN TROMETHAMINE ? BP [Suspect]
     Active Substance: FOSFOMYCIN TROMETHAMINE
     Indication: PRODUCT USED FOR UNKNOWN INDICATION
  8. XOLAIR [Suspect]
     Active Substance: OMALIZUMAB
     Dosage: 300.0 MG ONCE EVERY 2 WEEKS
     Route: 058
  9. XOLAIR [Suspect]
     Active Substance: OMALIZUMAB
     Dosage: 5 UNSPECIFIED REGIMEN
     Route: 058
  10. XOLAIR [Suspect]
     Active Substance: OMALIZUMAB
     Indication: BRONCHOPULMONARY ASPERGILLOSIS ALLERGIC
     Dosage: 12 REGIMENS OF 375 MG EVERY 2 WEEKS
     Route: 058
  11. XOLAIR [Suspect]
     Active Substance: OMALIZUMAB
     Indication: ASTHMA
     Dosage: 375.0 MG ONCE EVERY 2 WEEKS FOR 2256 DAYS
     Route: 058

REACTIONS (22)
  - Pneumonia [Not Recovered/Not Resolved]
  - Pseudomonas infection [Not Recovered/Not Resolved]
  - Dry skin [Not Recovered/Not Resolved]
  - Weight decreased [Not Recovered/Not Resolved]
  - Lower respiratory tract infection [Not Recovered/Not Resolved]
  - Periorbital oedema [Not Recovered/Not Resolved]
  - Heart rate irregular [Not Recovered/Not Resolved]
  - Sputum discoloured [Not Recovered/Not Resolved]
  - Hypersensitivity [Not Recovered/Not Resolved]
  - Respiratory tract irritation [Not Recovered/Not Resolved]
  - Aphonia [Not Recovered/Not Resolved]
  - Productive cough [Not Recovered/Not Resolved]
  - Prostate cancer [Not Recovered/Not Resolved]
  - Device related thrombosis [Not Recovered/Not Resolved]
  - Fatigue [Not Recovered/Not Resolved]
  - Pruritus [Not Recovered/Not Resolved]
  - Tooth fracture [Not Recovered/Not Resolved]
  - Blood pressure systolic increased [Not Recovered/Not Resolved]
  - Heart rate decreased [Not Recovered/Not Resolved]
  - Infected dermal cyst [Not Recovered/Not Resolved]
  - Dyspnoea [Not Recovered/Not Resolved]
  - Erythema [Not Recovered/Not Resolved]
